FAERS Safety Report 6409650-4 (Version None)
Quarter: 2009Q4

REPORT INFORMATION
  Report Type: 
  Country: None (occurrence: None)
  Receive Date: 20091019
  Receipt Date: 20091016
  Transmission Date: 20100525
  Serious: Yes (Other)
  Sender: FDA-Public Use
  Company Number: 003292

PATIENT
  Age: 66 Year
  Sex: Female

DRUGS (1)
  1. MACUGEN [Suspect]

REACTIONS (6)
  - DETACHMENT OF RETINAL PIGMENT EPITHELIUM [None]
  - DISEASE PROGRESSION [None]
  - INJECTION SITE REACTION [None]
  - MACULAR DEGENERATION [None]
  - NERVOUS SYSTEM DISORDER [None]
  - RETINAL VASCULAR DISORDER [None]
